FAERS Safety Report 5699085-4 (Version None)
Quarter: 2008Q2

REPORT INFORMATION
  Report Type: 
  Country: None (occurrence: None)
  Receive Date: 20080402
  Receipt Date: 20070517
  Transmission Date: 20081010
  Serious: Yes (Other)
  Sender: FDA-Public Use
  Company Number: 2007-BP-06706RO

PATIENT
  Age: 48 Year
  Sex: Male

DRUGS (3)
  1. MERCAPTOPURINE [Suspect]
     Indication: CROHN'S DISEASE
     Dosage: 100 MG DAILY,PO
     Route: 048
     Dates: start: 19990101, end: 20070101
  2. PENTASA [Suspect]
     Indication: CROHN'S DISEASE
     Dosage: 3000 MG (1000 MG,3 IN 1 D),PO
     Route: 048
     Dates: start: 20061101, end: 20070101
  3. QUESTRAN [Concomitant]

REACTIONS (3)
  - HAEMATOCRIT DECREASED [None]
  - HAEMOGLOBIN DECREASED [None]
  - WHITE BLOOD CELL COUNT DECREASED [None]
